FAERS Safety Report 20573176 (Version 1)
Quarter: 2022Q1

REPORT INFORMATION
  Report Type: Spontaneous
  Country: US (occurrence: None)
  Receive Date: 20220309
  Receipt Date: 20220309
  Transmission Date: 20220423
  Serious: No
  Sender: FDA-Public Use
  Company Number: None

PATIENT
  Sex: Female

DRUGS (1)
  1. ENBREL [Suspect]
     Active Substance: ETANERCEPT
     Indication: Pustular psoriasis
     Dosage: 50MG EVERY 7 DAYS SUB-Q?
     Route: 058
     Dates: start: 202202

REACTIONS (1)
  - Drug ineffective [None]
